FAERS Safety Report 12443119 (Version 2)
Quarter: 2016Q2

REPORT INFORMATION
  Report Type: Spontaneous
  Country: BR (occurrence: BR)
  Receive Date: 20160607
  Receipt Date: 20160609
  Transmission Date: 20160815
  Serious: Yes (Other)
  Sender: FDA-Public Use
  Company Number: BR-BAYER-2016-110945

PATIENT
  Age: 50 Year
  Sex: Female

DRUGS (2)
  1. XARELTO [Suspect]
     Active Substance: RIVAROXABAN
     Dosage: 20 MG, QD
     Dates: start: 201505
  2. ASPIRINA [Suspect]
     Active Substance: ASPIRIN
     Dosage: 1 DF, QD
     Dates: end: 201505

REACTIONS (3)
  - Ischaemic stroke [Recovered/Resolved]
  - Off label use [None]
  - Fibrin D dimer increased [Recovered/Resolved]

NARRATIVE: CASE EVENT DATE: 201605
